FAERS Safety Report 5088116-0 (Version None)
Quarter: 2006Q3

REPORT INFORMATION
  Report Type: 
  Country: None (occurrence: None)
  Receive Date: 20060823
  Receipt Date: 20060823
  Transmission Date: 20061208
  Serious: Yes (Other)
  Sender: FDA-Public Use
  Company Number: None

PATIENT
  Age: 61 Year
  Sex: Male
  Weight: 85.7298 kg

DRUGS (13)
  1. WARFARIN SODIUM [Suspect]
     Indication: PERIPHERAL VASCULAR DISORDER
     Dosage: 5 MG DAILY
  2. ACETAZOLAMIDE [Concomitant]
  3. FESO4 [Concomitant]
  4. GABAPENTIN [Concomitant]
  5. GLYBURIDE [Concomitant]
  6. BRIMONIDINE OPTH SOL [Concomitant]
  7. CYCLOPENTOLATE OPTH SOL [Concomitant]
  8. GATIFLOXACIN OPTH SOL [Concomitant]
  9. TIMOLOL OPTH [Concomitant]
  10. ISORDIL [Concomitant]
  11. METFORMIN HCL [Concomitant]
  12. METOPROLOL TARTRATE [Concomitant]
  13. RANITIDINE [Concomitant]

REACTIONS (4)
  - DYSURIA [None]
  - FLANK PAIN [None]
  - HAEMATURIA [None]
  - HAEMORRHAGE [None]
